FAERS Safety Report 12506610 (Version 2)
Quarter: 2016Q3

REPORT INFORMATION
  Report Type: Spontaneous
  Country: US (occurrence: US)
  Receive Date: 20160628
  Receipt Date: 20160815
  Transmission Date: 20161109
  Serious: No
  Sender: FDA-Public Use
  Company Number: US-009507513-1606USA010604

PATIENT
  Age: 20 Year

DRUGS (1)
  1. NEXPLANON [Suspect]
     Active Substance: ETONOGESTREL
     Dosage: UNK
     Route: 059

REACTIONS (3)
  - Incision site haemorrhage [Unknown]
  - Device difficult to use [Not Recovered/Not Resolved]
  - Incision site swelling [Unknown]

NARRATIVE: CASE EVENT DATE: 20160616
